FAERS Safety Report 20905077 (Version 1)
Quarter: 2022Q2

REPORT INFORMATION
  Report Type: Spontaneous
  Country: JP (occurrence: JP)
  Receive Date: 20220602
  Receipt Date: 20220602
  Transmission Date: 20220720
  Serious: Yes (Hospitalization)
  Sender: FDA-Public Use
  Company Number: None

PATIENT
  Age: 50 Year
  Sex: Female
  Weight: 52 kg

DRUGS (36)
  1. DAYVIGO [Suspect]
     Active Substance: LEMBOREXANT
     Indication: Insomnia
     Route: 048
     Dates: start: 20211203, end: 20211215
  2. DAYVIGO [Suspect]
     Active Substance: LEMBOREXANT
     Route: 048
     Dates: start: 20220101, end: 20220112
  3. CALONAL [Suspect]
     Active Substance: ACETAMINOPHEN
     Indication: Pyrexia
     Route: 048
     Dates: start: 20211126, end: 20211215
  4. CALONAL [Suspect]
     Active Substance: ACETAMINOPHEN
     Indication: Pain
  5. ACETAMINOPHEN [Suspect]
     Active Substance: ACETAMINOPHEN
     Indication: Pyrexia
     Route: 050
     Dates: start: 20211119, end: 20211119
  6. BISOPROLOL [Concomitant]
     Active Substance: BISOPROLOL
     Indication: Product used for unknown indication
     Dosage: DOSE AND FREQUENCY UNKNOWN
     Route: 062
     Dates: start: 20211122, end: 20211125
  7. MILLIS [Concomitant]
     Indication: Product used for unknown indication
     Dosage: (DOSE AND FREQUENCY UNKNOWN)
     Route: 062
     Dates: start: 20211122, end: 20211128
  8. SODIUM PICOSULFATE [Concomitant]
     Active Substance: SODIUM PICOSULFATE
     Indication: Constipation
     Dosage: (DOSE UNKNOWN) AS-NEEDED BASIS ONLY AS NEEDED FOR CONSTIPATION
     Dates: start: 20211123
  9. AMLODIPINE [Concomitant]
     Active Substance: AMLODIPINE BESYLATE
     Indication: Product used for unknown indication
     Dosage: (DOSE AND FREQUENCY UNKNOWN)
     Route: 048
     Dates: start: 20211124, end: 20211215
  10. TELMISARTAN [Concomitant]
     Active Substance: TELMISARTAN
     Indication: Product used for unknown indication
     Dosage: (DOSE AND FREQUENCY UNKNOWN)
     Route: 048
     Dates: start: 20211124, end: 20211215
  11. PREDNISOLONE [Concomitant]
     Active Substance: PREDNISOLONE
     Indication: Product used for unknown indication
     Dosage: (DOSE AND FREQUENCY UNKNOWN)
     Route: 048
     Dates: start: 20211124, end: 20211215
  12. PREDNISOLONE [Concomitant]
     Active Substance: PREDNISOLONE
     Dates: start: 20211203, end: 20211214
  13. MIYA-BM [Concomitant]
     Active Substance: CLOSTRIDIUM BUTYRICUM SPORES STRAIN M-55
     Indication: Product used for unknown indication
     Dosage: DOSE AND FREQUENCY UNKNOWN
     Route: 048
     Dates: start: 20211124, end: 20211215
  14. HERBALS [Concomitant]
     Active Substance: HERBALS
     Indication: Product used for unknown indication
     Dosage: (DOSE AND FREQUENCY UNKNOWN)
     Route: 048
     Dates: start: 20211129, end: 20211215
  15. KETOPROFEN [Concomitant]
     Active Substance: KETOPROFEN
     Indication: Product used for unknown indication
     Dosage: (DOSE AND FREQUENCY UNKNOWN)
     Route: 062
     Dates: start: 20211130
  16. OINTMENT BASES [Concomitant]
     Indication: Anal erythema
     Dosage: (DOSE AND FREQUENCY UNKNOWN)
     Route: 065
     Dates: start: 20211128, end: 20211221
  17. LOXOPROFEN SODIUM DIHYDRATE [Concomitant]
     Active Substance: LOXOPROFEN SODIUM DIHYDRATE
     Indication: Pain
     Dosage: (DOSE UNKNOWN) AS NEEDED FOR PAIN AS-NEEDED BASIS
     Route: 048
     Dates: start: 20211201, end: 20211209
  18. SENNOSIDES [Concomitant]
     Active Substance: SENNOSIDES
     Indication: Product used for unknown indication
     Dosage: DOSE AND FREQUENCY UNKNOWN
     Route: 048
     Dates: start: 20211211, end: 20211211
  19. SODIUM CHLORIDE [Concomitant]
     Active Substance: SODIUM CHLORIDE
     Indication: Product used for unknown indication
     Dosage: (DOSE AND FREQUENCY UNKNOWN)
     Route: 065
     Dates: start: 20211119, end: 20211126
  20. YD SOLITA-T NO.3 [Concomitant]
     Indication: Product used for unknown indication
     Dosage: (DOSE AND FREQUENCY)
     Route: 065
     Dates: start: 20211119, end: 20211130
  21. BETAMETHASONE SODIUM PHOSPHATE [Concomitant]
     Active Substance: BETAMETHASONE SODIUM PHOSPHATE
     Indication: Product used for unknown indication
     Dosage: (DOSE AND FREQUENCY UNKNOWN)
     Route: 065
     Dates: start: 20211119, end: 20211123
  22. CEFAZOLIN SODIUM [Concomitant]
     Active Substance: CEFAZOLIN SODIUM
     Indication: Product used for unknown indication
     Dosage: (DOSE AND FREQUENCY UNKNOWN)
     Route: 065
     Dates: start: 20211119, end: 20211120
  23. CEFTRIAXONE SODIUM [Concomitant]
     Active Substance: CEFTRIAXONE SODIUM
     Indication: Product used for unknown indication
     Dosage: (DOSE AND FREQUENCY UNKNOWN)
     Route: 065
     Dates: start: 20211120, end: 20211127
  24. PROPOFOL [Concomitant]
     Active Substance: PROPOFOL
     Indication: Product used for unknown indication
     Dosage: (DOSE AND FREQUENCY UNKNOWN)
     Route: 065
     Dates: start: 20211119, end: 20211121
  25. FENTANYL [Concomitant]
     Active Substance: FENTANYL
     Indication: Product used for unknown indication
     Dosage: (DOSE AND FREQUENCY UNKNOWN)
     Route: 065
     Dates: start: 20211119, end: 20211122
  26. NICARDIPINE HYDROCHLORIDE [Concomitant]
     Active Substance: NICARDIPINE HYDROCHLORIDE
     Indication: Product used for unknown indication
     Dosage: (DOSE AND FREQUENCY UNKNOWN)
     Route: 065
     Dates: start: 20211119, end: 20211125
  27. METOCLOPRAMIDE [Concomitant]
     Active Substance: METOCLOPRAMIDE
     Indication: Product used for unknown indication
     Dosage: (DOSE AND FREQUENCY UNKNOWN)
     Route: 065
     Dates: start: 20211201, end: 20211201
  28. CALCIUM GLUCONATE\DEXTROSE\MAGNESIUM CHLORIDE\POTASSIUM CHLORIDE\SODIU [Concomitant]
     Active Substance: CALCIUM GLUCONATE\DEXTROSE\MAGNESIUM CHLORIDE\POTASSIUM CHLORIDE\SODIUM ACETATE\SODIUM CHLORIDE\TRIS
     Indication: Product used for unknown indication
     Dosage: (DOSE AND FREQUENCY UNKNOWN)
     Route: 065
     Dates: start: 20211119, end: 20211119
  29. EPHEDRINE HYDROCHLORIDE [Concomitant]
     Active Substance: EPHEDRINE HYDROCHLORIDE
     Indication: Product used for unknown indication
     Dosage: (DOSE AND FREQUENCY UNKNOWN)
     Route: 065
     Dates: start: 20211119, end: 20211119
  30. PHENYLEPHRINE HYDROCHLORIDE [Concomitant]
     Active Substance: PHENYLEPHRINE HYDROCHLORIDE
     Indication: Product used for unknown indication
     Dosage: (DOSE AND FREQUENCY UNKNOWN)
     Route: 065
     Dates: start: 20211119, end: 20211119
  31. NICARDIPINE HYDROCHLORIDE [Concomitant]
     Active Substance: NICARDIPINE HYDROCHLORIDE
     Indication: Product used for unknown indication
     Dosage: (DOSE AND FREQUENCY UNKNOWN)
     Route: 065
     Dates: start: 20211119, end: 20211119
  32. HEPARIN SODIUM [Concomitant]
     Active Substance: HEPARIN SODIUM
     Indication: Product used for unknown indication
     Dosage: (DOSE AND FREQUENCY UNKNOWN)
     Route: 065
     Dates: start: 20211119, end: 20211119
  33. ARTCEREB [Concomitant]
     Indication: Product used for unknown indication
     Dosage: (DOSE AND FREQUENCY UNKNOWN)
     Route: 065
     Dates: start: 20211119, end: 20211119
  34. ROCURONIUM BROMIDE [Concomitant]
     Active Substance: ROCURONIUM BROMIDE
     Indication: Product used for unknown indication
     Dosage: (DOSE AND FREQUENCY UNKNOWN)
     Route: 065
     Dates: start: 20211119, end: 20211119
  35. SEVOFLURANE [Concomitant]
     Active Substance: SEVOFLURANE
     Indication: Product used for unknown indication
     Dosage: (DOSE AND FREQUENCY UNKNOWN)
     Route: 065
     Dates: start: 20211119, end: 20211119
  36. XYLOCAINE WITH EPINEPHRINE [Concomitant]
     Active Substance: EPINEPHRINE BITARTRATE\LIDOCAINE HYDROCHLORIDE
     Indication: Product used for unknown indication
     Dosage: DOSE AND FREQUENCY UNKNOWN
     Route: 065
     Dates: start: 20211119, end: 20211119

REACTIONS (2)
  - Stevens-Johnson syndrome [Unknown]
  - Toxic epidermal necrolysis [Unknown]

NARRATIVE: CASE EVENT DATE: 20211204
